FAERS Safety Report 7237912-X (Version None)
Quarter: 2011Q1

REPORT INFORMATION
  Report Type: 
  Country: None (occurrence: None)
  Receive Date: 20110119
  Receipt Date: 20110119
  Transmission Date: 20110831
  Serious: Yes (Life-Threatening)
  Sender: FDA-Public Use
  Company Number: None

PATIENT
  Age: 66 Year
  Sex: Male
  Weight: 97 kg

DRUGS (1)
  1. PHENOL [Suspect]
     Dosage: 1 PUFF (S) OTHER TOP
     Route: 061
     Dates: start: 20101016, end: 20101019

REACTIONS (2)
  - RESPIRATORY FAILURE [None]
  - LARYNGEAL OEDEMA [None]
